FAERS Safety Report 9184376 (Version 1)
Quarter: 2012Q4

REPORT INFORMATION
  Report Type: 
  Country: JP (occurrence: JP)
  Receive Date: 20121031
  Receipt Date: 20121031
  Transmission Date: 20130627
  Serious: Yes (Hospitalization, Other)
  Sender: FDA-Public Use
  Company Number: JP-009507513-2012SP029255

PATIENT
  Age: 67 Year
  Sex: Female
  Weight: 60 kg

DRUGS (14)
  1. PEGINTRON [Suspect]
     Indication: HEPATITIS C
     Dosage: 1.5 Microgram per kilogram, qw
     Route: 058
     Dates: start: 20120308, end: 20120501
  2. PEGINTRON [Suspect]
     Dosage: 0.9 Microgram per kilogram, qw
     Route: 058
     Dates: start: 20120502
  3. REBETOL [Suspect]
     Indication: HEPATITIS C
     Dosage: 800 mg, QD
     Route: 048
     Dates: start: 20120308, end: 20120327
  4. REBETOL [Suspect]
     Dosage: 600 mg, QD
     Route: 048
     Dates: start: 20120328, end: 20120403
  5. REBETOL [Suspect]
     Dosage: 400 mg, QD
     Route: 048
     Dates: start: 20120404, end: 20120410
  6. REBETOL [Suspect]
     Dosage: 200 mg, QD
     Route: 048
     Dates: start: 20120411, end: 20120521
  7. TELAVIC [Suspect]
     Indication: HEPATITIS C
     Dosage: 2250 mg, QD
     Route: 048
     Dates: start: 20120308, end: 20120403
  8. TELAVIC [Suspect]
     Dosage: 1500 mg, QD
     Route: 048
     Dates: start: 20120404, end: 20120424
  9. TELAVIC [Suspect]
     Dosage: 1000 mg, QD
     Route: 048
     Dates: start: 20120425, end: 20120509
  10. MAIBASTAN [Concomitant]
     Indication: PROPHYLAXIS
     Dosage: FORMULATION:POR
     Route: 048
  11. MAGMITT [Concomitant]
     Indication: PROPHYLAXIS
     Dosage: 1500 mg, qd
     Route: 048
     Dates: start: 20120315
  12. GASTROM [Concomitant]
     Indication: PROPHYLAXIS
     Dosage: FORMULATION:GRA
     Route: 048
     Dates: start: 20120321
  13. ZYLORIC [Concomitant]
     Indication: PROPHYLAXIS
     Dosage: FORMULATION:POR
     Route: 048
     Dates: start: 20120404, end: 20120515
  14. VOLTAREN [Concomitant]
     Indication: PROPHYLAXIS
     Dosage: 25 mg, UNK, as needed
     Route: 048
     Dates: start: 20120308

REACTIONS (4)
  - Pyelonephritis [Recovered/Resolved]
  - Loss of consciousness [Recovered/Resolved]
  - Blood creatinine increased [Not Recovered/Not Resolved]
  - Anaemia [Recovered/Resolved]
